FAERS Safety Report 10174293 (Version 1)
Quarter: 2014Q2

REPORT INFORMATION
  Report Type: Spontaneous
  Country: US (occurrence: None)
  Receive Date: 20140416
  Receipt Date: 20140416
  Transmission Date: 20141212
  Serious: Yes (Other)
  Sender: FDA-Public Use
  Company Number: 163-POMAL-14012190

PATIENT
  Age: 86 Year
  Sex: Female

DRUGS (4)
  1. POMALYST [Suspect]
     Indication: PLASMA CELL MYELOMA
     Dosage: 2 MG, 21 IN 28 D, PO?
     Route: 048
     Dates: start: 20131224
  2. DEXAMETHASONE (DEXAMETHASONE) (UNKNOWN) [Concomitant]
  3. MULTIVITAMIN (MULTIVITAMINS) (UNKNOWN) [Concomitant]
  4. ASPIRIN (ACETYLSALICYLIC ACID) (UNKNOWN) (ACETYLSALICYLIC ACID) [Concomitant]

REACTIONS (2)
  - Nasopharyngitis [None]
  - Unevaluable event [None]
